FAERS Safety Report 14607029 (Version 1)
Quarter: 2018Q1

REPORT INFORMATION
  Report Type: Spontaneous
  Country: US (occurrence: US)
  Receive Date: 20180307
  Receipt Date: 20180307
  Transmission Date: 20180509
  Serious: No
  Sender: FDA-Public Use
  Company Number: US-BAYER-2018-041740

PATIENT
  Age: 2 Year
  Sex: Male
  Weight: 17 kg

DRUGS (3)
  1. ANTACID [CALCIUM CARBONATE] [Concomitant]
  2. TYLENOL CHILDREN`S [Concomitant]
  3. MIRALAX [Suspect]
     Active Substance: POLYETHYLENE GLYCOL 3350
     Indication: GASTROINTESTINAL DISORDER
     Dosage: ;2-3 BABY SPOONS HEAPING FULL DOSE
     Route: 048

REACTIONS (2)
  - Product use issue [Unknown]
  - Abdominal pain [Not Recovered/Not Resolved]
